FAERS Safety Report 9225608 (Version 2)
Quarter: 2013Q2

REPORT INFORMATION
  Report Type: Spontaneous
  Country: US (occurrence: US)
  Receive Date: 20130411
  Receipt Date: 20130520
  Transmission Date: 20140414
  Serious: Yes (Hospitalization)
  Sender: FDA-Public Use
  Company Number: US-ROCHE-1210513

PATIENT
  Age: 64 Year
  Sex: Female

DRUGS (3)
  1. ACTILYSE [Suspect]
     Indication: THROMBOSIS
     Route: 042
     Dates: start: 2009
  2. HEPARIN [Suspect]
     Indication: THROMBOSIS
     Route: 042
     Dates: start: 2009
  3. WARFARIN [Suspect]
     Indication: THROMBOLYSIS
     Route: 065

REACTIONS (3)
  - Extradural haematoma [Unknown]
  - Functional gastrointestinal disorder [Unknown]
  - Hypoaesthesia [Unknown]
